FAERS Safety Report 7374472-7 (Version None)
Quarter: 2011Q1

REPORT INFORMATION
  Report Type: 
  Country: None (occurrence: None)
  Receive Date: 20110325
  Receipt Date: 20110120
  Transmission Date: 20110831
  Serious: No
  Sender: FDA-Public Use
  Company Number: US-MYLANLABS-2011S1000376

PATIENT
  Age: 76 Year
  Sex: Male
  Weight: 58.97 kg

DRUGS (3)
  1. PERCOCET [Concomitant]
     Dosage: 5MG/325MG EVERY 6 HOURS PRN
  2. BACTRIM DS [Concomitant]
     Dosage: X 7 DAYS
  3. FENTANYL-100 [Suspect]
     Indication: PAIN
     Dosage: CHANGED Q72H
     Route: 062
     Dates: start: 20101221, end: 20101223

REACTIONS (3)
  - NAUSEA [None]
  - VOMITING [None]
  - DRUG INTOLERANCE [None]
